FAERS Safety Report 6980925-3 (Version None)
Quarter: 2010Q3

REPORT INFORMATION
  Report Type: 
  Country: None (occurrence: None)
  Receive Date: 20100914
  Receipt Date: 20100908
  Transmission Date: 20110219
  Serious: Yes (Hospitalization, Disabling, Other)
  Sender: FDA-Public Use
  Company Number: A0880306A

PATIENT
  Age: 68 Year
  Sex: Male

DRUGS (13)
  1. ALKERAN [Suspect]
     Indication: MULTIPLE MYELOMA
     Dosage: 1INJ SINGLE DOSE
     Route: 042
     Dates: start: 20100831, end: 20100831
  2. ACYCLOVIR [Concomitant]
  3. CIPROFLOXACIN [Concomitant]
  4. GABAPENTIN [Concomitant]
  5. PRILOSEC [Concomitant]
  6. METRONIDAZOLE [Concomitant]
  7. OMEPRAZOLE [Concomitant]
  8. PROCHLORPERAZINE [Concomitant]
  9. CLONAZEPAM [Concomitant]
  10. LORAZEPAM [Concomitant]
  11. ZOFRAN [Concomitant]
  12. OXYCODONE [Concomitant]
  13. AMBIEN [Concomitant]

REACTIONS (1)
  - MYOCLONUS [None]
